FAERS Safety Report 4567406-1 (Version None)
Quarter: 2005Q1

REPORT INFORMATION
  Report Type: 
  Country: None (occurrence: None)
  Receive Date: 20050127
  Receipt Date: 20050124
  Transmission Date: 20050727
  Serious: Yes (Hospitalization)
  Sender: FDA-Public Use
  Company Number: TUK2005A00008

PATIENT
  Age: 46 Year
  Sex: Female

DRUGS (9)
  1. ACTOS [Suspect]
     Indication: DIABETES MELLITUS
     Dosage: 15 MG ORAL
     Route: 048
     Dates: start: 20040923, end: 20041007
  2. AMLODIPINE [Concomitant]
  3. IRBESARTAN [Concomitant]
  4. PERINDOPRIL (PERINDOPRIL) [Concomitant]
  5. METFORMIN HCL [Concomitant]
  6. FENOFIBRATE [Concomitant]
  7. ATENOLOL [Concomitant]
  8. HUMALOG [Concomitant]
  9. ATORVASTATIN (ATORVASTATIN) [Concomitant]

REACTIONS (1)
  - VASCULITIS [None]
